FAERS Safety Report 7135706-7 (Version None)
Quarter: 2010Q4

REPORT INFORMATION
  Report Type: 
  Country: None (occurrence: None)
  Receive Date: 20101203
  Receipt Date: 20101122
  Transmission Date: 20110411
  Serious: Yes (Other)
  Sender: FDA-Public Use
  Company Number: US-GILEAD-2010-0033825

PATIENT
  Age: 58 Year
  Sex: Female

DRUGS (4)
  1. TENOFOVIR DISOPROXIL FUMARATE [Suspect]
     Indication: HIV INFECTION
  2. EMTRICITABINE [Suspect]
     Indication: HIV INFECTION
  3. ATAZANAVIR [Suspect]
     Indication: HIV INFECTION
  4. RITONAVIR [Suspect]
     Indication: HIV INFECTION

REACTIONS (1)
  - RENAL TUBULAR NECROSIS [None]
